FAERS Safety Report 6043068-1 (Version None)
Quarter: 2009Q1

REPORT INFORMATION
  Report Type: 
  Country: None (occurrence: None)
  Receive Date: 20090119
  Receipt Date: 20090113
  Transmission Date: 20090719
  Serious: Yes (Other)
  Sender: FDA-Public Use
  Company Number: US-BAYER-200839979NA

PATIENT
  Age: 35 Year
  Sex: Female
  Weight: 83 kg

DRUGS (14)
  1. AVELOX [Suspect]
     Indication: SINUSITIS
     Dosage: UNIT DOSE: 400 MG
     Dates: start: 20081119, end: 20081128
  2. PREDNISONE [Suspect]
     Indication: SINUSITIS
     Dates: start: 20081119, end: 20081128
  3. NASONEX [Concomitant]
  4. SINGULAIR [Concomitant]
     Dosage: TOTAL DAILY DOSE: 10 MG  UNIT DOSE: 10 MG
  5. XOPENEX [Concomitant]
     Route: 055
  6. ALLEGRA D 24 HOUR [Concomitant]
  7. PROVENTIL [Concomitant]
     Route: 055
  8. DYAZIDE [Concomitant]
  9. ZYRTEC-D 12 HOUR [Concomitant]
     Indication: MULTIPLE ALLERGIES
     Route: 048
  10. RHINOCORT [Concomitant]
  11. EPIPEN [Concomitant]
     Route: 030
  12. IMMUNOTHERAPY A NOS [Concomitant]
  13. IMMUNOTHERAPY B NOS [Concomitant]
  14. SALINE MIST [Concomitant]
     Route: 045

REACTIONS (4)
  - BREAST DISCHARGE [None]
  - BREAST TENDERNESS [None]
  - NIPPLE EXUDATE BLOODY [None]
  - STRESS [None]
